FAERS Safety Report 8582735-2 (Version None)
Quarter: 2012Q3

REPORT INFORMATION
  Report Type: 
  Country: None (occurrence: None)
  Receive Date: 20120809
  Receipt Date: 20120807
  Transmission Date: 20120928
  Serious: Yes (Hospitalization)
  Sender: FDA-Public Use
  Company Number: FR-ROCHE-1099055

PATIENT
  Age: 45 Year
  Sex: Female

DRUGS (7)
  1. NORVIR [Concomitant]
  2. COPEGUS [Suspect]
     Indication: PRODUCT USED FOR UNKNOWN INDICATION
     Route: 048
     Dates: end: 20120517
  3. PREZISTA [Concomitant]
  4. PEGASYS [Suspect]
     Indication: PRODUCT USED FOR UNKNOWN INDICATION
     Route: 058
     Dates: end: 20120513
  5. ISENTRESS [Concomitant]
  6. EPO [Concomitant]
     Dosage: DRUG REPORTED AS (30000)
  7. ZARZIO [Concomitant]
     Dosage: DRUG REPORTED AS ZARZIO 30

REACTIONS (1)
  - PANCYTOPENIA [None]
